FAERS Safety Report 18672083 (Version 1)
Quarter: 2020Q4

REPORT INFORMATION
  Report Type: Spontaneous
  Country: US (occurrence: US)
  Receive Date: 20201228
  Receipt Date: 20201228
  Transmission Date: 20210114
  Serious: Yes (Other)
  Sender: FDA-Public Use
  Company Number: US-NOVOPROD-768679

PATIENT
  Age: 62 Year
  Sex: Female

DRUGS (1)
  1. OZEMPIC [Suspect]
     Active Substance: SEMAGLUTIDE
     Indication: TYPE 2 DIABETES MELLITUS
     Dosage: 0.25 MG, SINGLE
     Route: 058
     Dates: start: 20201112, end: 20201112

REACTIONS (3)
  - Hypersensitivity [Recovered/Resolved]
  - Angioedema [Recovered/Resolved]
  - Asthma [Recovered/Resolved]

NARRATIVE: CASE EVENT DATE: 20201113
